FAERS Safety Report 11218057 (Version 2)
Quarter: 2015Q3

REPORT INFORMATION
  Report Type: Spontaneous
  Country: PT (occurrence: None)
  Receive Date: 20150623
  Receipt Date: 20150724
  Transmission Date: 20151125
  Serious: Yes (Hospitalization)
  Sender: FDA-Public Use
  Company Number: DEP_03043_2015

PATIENT
  Age: 34 Year
  Sex: Female
  Weight: 65 kg

DRUGS (4)
  1. TRANSTEC (TRANSTEC (BUPRENORPHINE)) 35 UG (NOT SPECIFIED) [Suspect]
     Active Substance: BUPRENORPHINE
     Indication: NECK PAIN
     Dosage: Q1H
     Route: 062
     Dates: start: 20150418, end: 20150511
  2. METANOR (METANOR (FLUPIRTINE MALEATE)) (NOT SPECIFIED) [Suspect]
     Active Substance: FLUPIRTINE MALEATE
     Indication: NECK PAIN
     Route: 048
     Dates: start: 20150328, end: 20150511
  3. EXXIV (ETORICOXIB) [Suspect]
     Active Substance: ETORICOXIB
     Indication: NECK PAIN
     Route: 048
     Dates: start: 20150328, end: 20150511
  4. PALEXIA [Suspect]
     Active Substance: TAPENTADOL HYDROCHLORIDE
     Indication: NECK PAIN
     Route: 048
     Dates: start: 20150328, end: 20150511

REACTIONS (1)
  - Drug-induced liver injury [None]

NARRATIVE: CASE EVENT DATE: 20150515
